FAERS Safety Report 7005828-X (Version None)
Quarter: 2010Q3

REPORT INFORMATION
  Report Type: 
  Country: None (occurrence: None)
  Receive Date: 20100921
  Receipt Date: 20100913
  Transmission Date: 20110219
  Serious: Yes (Other)
  Sender: FDA-Public Use
  Company Number: US-ELI_LILLY_AND_COMPANY-US201009002994

PATIENT
  Age: 60 Year
  Sex: Female

DRUGS (5)
  1. HUMATROPE [Suspect]
     Indication: GROWTH HORMONE DEFICIENCY
     Dosage: 0.4 MG, DAILY (1/D)
     Route: 058
  2. HUMATROPE [Suspect]
     Dosage: 0.4 MG, DAILY (1/D)
     Route: 058
     Dates: start: 20100912
  3. HUMATROPE [Suspect]
     Dosage: 0.1 MG, DAILY (1/D)
     Route: 058
     Dates: start: 20100912, end: 20100912
  4. HUMATROPE [Suspect]
     Dosage: 0.35 MG, DAILY (1/D)
     Route: 058
     Dates: start: 20100913, end: 20100913
  5. SYNTHROID [Concomitant]

REACTIONS (6)
  - AUTOIMMUNE DISORDER [None]
  - EXPOSURE TO TOXIC AGENT [None]
  - INCORRECT DOSE ADMINISTERED [None]
  - NASOPHARYNGITIS [None]
  - OCULAR NEOPLASM [None]
  - WEIGHT INCREASED [None]
